FAERS Safety Report 10015286 (Version 2)
Quarter: 2014Q2

REPORT INFORMATION
  Report Type: Spontaneous
  Country: US (occurrence: US)
  Receive Date: 20140317
  Receipt Date: 20140527
  Transmission Date: 20141212
  Serious: No
  Sender: FDA-Public Use
  Company Number: US-PFIZER INC-2014072273

PATIENT
  Age: 52 Year
  Sex: Female
  Weight: 86.17 kg

DRUGS (14)
  1. SUTENT [Suspect]
     Indication: RENAL CANCER
     Dosage: 50 MG, UNK
     Dates: start: 20140211, end: 20140222
  2. SUTENT [Suspect]
     Dosage: UNK
     Dates: start: 20140224
  3. LISINOPRIL [Concomitant]
     Indication: HYPERTENSION
     Dosage: 10 MG, 1X/DAY
  4. LOVAZA [Concomitant]
     Indication: BLOOD TRIGLYCERIDES INCREASED
     Dosage: 2 DF, 2X/DAY
  5. FLUVOXAMINE [Concomitant]
     Indication: OBSESSIVE-COMPULSIVE DISORDER
     Dosage: 150 MG, 1X/DAY
  6. FLONASE [Concomitant]
     Dosage: UNK
  7. PROPRANOLOL [Concomitant]
     Dosage: UNK
  8. OMEPRAZOLE [Concomitant]
     Dosage: UNK
  9. MELATONIN [Concomitant]
     Dosage: UNK
  10. VITAMIN C [Concomitant]
     Dosage: UNK
  11. VITAMIN B-12 [Concomitant]
     Dosage: UNK
  12. CALCIUM [Concomitant]
     Dosage: UNK
  13. MAGNESIUM [Concomitant]
     Dosage: UNK
  14. M.V.I. [Concomitant]
     Dosage: UNK

REACTIONS (6)
  - Pyrexia [Unknown]
  - Vomiting [Unknown]
  - Diarrhoea [Unknown]
  - Skin disorder [Unknown]
  - Disease progression [Unknown]
  - Renal cancer [Unknown]
